FAERS Safety Report 8085656-7 (Version None)
Quarter: 2012Q1

REPORT INFORMATION
  Report Type: 
  Country: None (occurrence: None)
  Receive Date: 20120128
  Receipt Date: 20110405
  Transmission Date: 20120608
  Serious: No
  Sender: FDA-Public Use
  Company Number: US-ABBOTT-11P-163-0716602-00

PATIENT
  Age: 70 Year
  Sex: Male

DRUGS (15)
  1. ZOCOR [Concomitant]
     Indication: BLOOD CHOLESTEROL INCREASED
  2. GEMFIBROZIL [Concomitant]
     Indication: BLOOD CHOLESTEROL INCREASED
  3. ASPIRIN [Concomitant]
     Indication: CARDIOVASCULAR EVENT PROPHYLAXIS
  4. HUMIRA [Suspect]
     Indication: PSORIASIS
     Dates: start: 20090101
  5. DETROL LA [Concomitant]
     Indication: BLADDER DISORDER
  6. ZYRTEC [Concomitant]
     Indication: SEASONAL ALLERGY
  7. ASPIRIN [Concomitant]
     Indication: BLOOD CHOLESTEROL INCREASED
  8. JANUMET [Concomitant]
     Indication: TYPE 2 DIABETES MELLITUS
     Dosage: 50MG/1000MG, 2 IN 1 DAY
  9. PROZAC [Concomitant]
     Indication: DEPRESSION
  10. IBUPROFEN [Concomitant]
     Indication: PAIN
     Dosage: 4 TABS AS REQUIRED
  11. FE [Concomitant]
     Indication: ANAEMIA
  12. PROZAC [Concomitant]
     Indication: ANXIETY
  13. VITAMIN B-12 [Concomitant]
     Indication: VITAMIN SUPPLEMENTATION
  14. LOVAZA [Concomitant]
     Indication: VITAMIN SUPPLEMENTATION
  15. LORCET-HD [Concomitant]
     Indication: PAIN
     Dosage: 50/650, AS REQUIRED

REACTIONS (3)
  - GAIT DISTURBANCE [None]
  - PAIN IN EXTREMITY [None]
  - PSORIASIS [None]
